FAERS Safety Report 9924439 (Version 1)
Quarter: 2014Q1

REPORT INFORMATION
  Report Type: Spontaneous
  Country: US (occurrence: None)
  Receive Date: 20140224
  Receipt Date: 20140224
  Transmission Date: 20141002
  Serious: Yes (Other)
  Sender: FDA-Public Use
  Company Number: None

PATIENT
  Age: 71 Year
  Sex: Female
  Weight: 76.2 kg

DRUGS (1)
  1. PRAMIPEXOLE [Suspect]
     Indication: MUSCLE SPASMS
     Dosage: ONCE DAILY
     Dates: start: 20130901, end: 20131001

REACTIONS (11)
  - Insomnia [None]
  - Hallucination [None]
  - Arthralgia [None]
  - Headache [None]
  - Arthralgia [None]
  - Alopecia [None]
  - Visual impairment [None]
  - Fatigue [None]
  - Rhinorrhoea [None]
  - Rash [None]
  - Swelling face [None]
